FAERS Safety Report 24971558 (Version 6)
Quarter: 2025Q4

REPORT INFORMATION
  Report Type: Report from Study
  Country: GB (occurrence: GB)
  Receive Date: 20250214
  Receipt Date: 20251211
  Transmission Date: 20260118
  Serious: Yes (Hospitalization, Other)
  Sender: NOVARTIS
  Company Number: GB-002147023-NVSC2025GB024814

PATIENT
  Sex: Male

DRUGS (1)
  1. MAYZENT [Suspect]
     Active Substance: SIPONIMOD
     Indication: Multiple sclerosis
     Dosage: 2 MG, QD
     Route: 048
     Dates: start: 20240415

REACTIONS (14)
  - Cerebral haemorrhage [Unknown]
  - Urinary tract infection [Not Recovered/Not Resolved]
  - Fatigue [Unknown]
  - Malaise [Unknown]
  - Lower respiratory tract infection [Recovering/Resolving]
  - Multiple sclerosis relapse [Unknown]
  - Diplopia [Not Recovered/Not Resolved]
  - Hypotension [Unknown]
  - White blood cell count abnormal [Unknown]
  - Lymphocyte count abnormal [Unknown]
  - Blood alkaline phosphatase abnormal [Unknown]
  - Alanine aminotransferase abnormal [Unknown]
  - Gamma-glutamyltransferase abnormal [Unknown]
  - Product dose omission issue [Unknown]

NARRATIVE: CASE EVENT DATE: 20251005
